FAERS Safety Report 17470562 (Version 1)
Quarter: 2020Q1

REPORT INFORMATION
  Report Type: Report from Study
  Country: None (occurrence: US)
  Receive Date: 20200227
  Receipt Date: 20200227
  Transmission Date: 20200409
  Serious: Yes (Hospitalization)
  Sender: FDA-Public Use
  Company Number: US-ABBVIE-20P-163-3288649-00

PATIENT
  Age: 76 Year
  Sex: Male

DRUGS (20)
  1. NORMAL SALINE SOLUTION [Concomitant]
     Route: 042
     Dates: start: 20200120, end: 20200120
  2. NORMAL SALINE SOLUTION [Concomitant]
     Route: 042
     Dates: start: 20200131, end: 20200206
  3. VENETOCLAX. [Suspect]
     Active Substance: VENETOCLAX
     Route: 048
     Dates: start: 20200114, end: 20200114
  4. NORMAL SALINE SOLUTION [Concomitant]
     Route: 042
     Dates: start: 20200129, end: 20200129
  5. NORMAL SALINE SOLUTION [Concomitant]
     Route: 042
     Dates: start: 20200217, end: 20200217
  6. TYLENOL [Concomitant]
     Active Substance: ACETAMINOPHEN
     Indication: PYREXIA
     Route: 048
     Dates: start: 20200101
  7. PRILOSEC [Concomitant]
     Active Substance: OMEPRAZOLE MAGNESIUM
     Indication: GASTROOESOPHAGEAL REFLUX DISEASE
     Route: 048
     Dates: start: 20200121
  8. NORMAL SALINE SOLUTION [Concomitant]
     Route: 042
     Dates: start: 20200121, end: 20200127
  9. ONDANSETRON [Concomitant]
     Active Substance: ONDANSETRON
     Indication: NAUSEA
     Route: 048
     Dates: start: 20200120
  10. REGLAN [Concomitant]
     Active Substance: METOCLOPRAMIDE HYDROCHLORIDE
     Indication: NAUSEA
     Route: 048
     Dates: start: 20200131
  11. MEGACE [Concomitant]
     Active Substance: MEGESTROL ACETATE
     Indication: DECREASED APPETITE
     Dosage: DOSE: 625/5 MG
     Route: 048
     Dates: start: 20200129
  12. VENETOCLAX. [Suspect]
     Active Substance: VENETOCLAX
     Indication: ACUTE MYELOID LEUKAEMIA
     Route: 048
     Dates: start: 20200113, end: 20200113
  13. NORMAL SALINE SOLUTION [Concomitant]
     Route: 042
     Dates: start: 20200210, end: 20200214
  14. ONDANSETRON [Concomitant]
     Active Substance: ONDANSETRON
     Indication: VOMITING
  15. ACYCLOVIR. [Concomitant]
     Active Substance: ACYCLOVIR
     Indication: PROPHYLAXIS
     Route: 048
     Dates: start: 20200123
  16. MIDODRINE [Concomitant]
     Active Substance: MIDODRINE
     Indication: HYPOTENSION
     Route: 048
     Dates: start: 20200129
  17. VENETOCLAX. [Suspect]
     Active Substance: VENETOCLAX
     Route: 048
     Dates: start: 20200115, end: 20200219
  18. DECITABINE. [Suspect]
     Active Substance: DECITABINE
     Indication: ACUTE MYELOID LEUKAEMIA
     Dosage: DAYS 1-5 OF EACH 28 DAY PROTOCOL
     Route: 042
     Dates: start: 20200113
  19. ALLOPURINOL. [Concomitant]
     Active Substance: ALLOPURINOL
     Indication: PROPHYLAXIS
     Route: 048
     Dates: start: 20200110, end: 20200127
  20. NORMAL SALINE SOLUTION [Concomitant]
     Indication: PROPHYLAXIS
     Route: 042
     Dates: start: 20200113, end: 20200117

REACTIONS (1)
  - Sepsis [Not Recovered/Not Resolved]

NARRATIVE: CASE EVENT DATE: 20200219
